FAERS Safety Report 14567647 (Version 1)
Quarter: 2018Q1

REPORT INFORMATION
  Report Type: Spontaneous
  Country: US (occurrence: US)
  Receive Date: 20180223
  Receipt Date: 20180223
  Transmission Date: 20180509
  Serious: Yes (Death, Hospitalization)
  Sender: FDA-Public Use
  Company Number: None

PATIENT
  Age: 41 Year
  Sex: Female
  Weight: 70.31 kg

DRUGS (2)
  1. MIFEPRISTONE [Suspect]
     Active Substance: MIFEPRISTONE
     Indication: ABORTION INDUCED
     Route: 048
     Dates: start: 20170726
  2. MISOPROSTOL. [Suspect]
     Active Substance: MISOPROSTOL
     Dosage: 7/27/2017 OR 7/28/2017
     Route: 002

REACTIONS (1)
  - Death [None]

NARRATIVE: CASE EVENT DATE: 20170905
